FAERS Safety Report 7179320-6 (Version None)
Quarter: 2010Q4

REPORT INFORMATION
  Report Type: 
  Country: None (occurrence: None)
  Receive Date: 20101221
  Receipt Date: 20101213
  Transmission Date: 20110411
  Serious: Yes (Hospitalization)
  Sender: FDA-Public Use
  Company Number: DE-MILLENNIUM PHARMACEUTICALS, INC.-2010-06196

PATIENT

DRUGS (5)
  1. VELCADE [Suspect]
     Indication: MULTIPLE MYELOMA
     Dosage: 1.3 MG/M2, CYCLIC
     Route: 042
     Dates: start: 20101111, end: 20101206
  2. ADRIAMYCIN PFS [Suspect]
     Indication: MULTIPLE MYELOMA
     Dosage: 9 MG/M2, CYCLIC
     Route: 042
     Dates: start: 20101111, end: 20101207
  3. DEXAMETHASONE [Suspect]
     Indication: MULTIPLE MYELOMA
     Dosage: 20 MG, CYCLIC
     Route: 048
     Dates: start: 20101111, end: 20101207
  4. COTRIM [Concomitant]
     Indication: INFECTION PROPHYLAXIS
     Dosage: 960 MG, UNK
     Dates: start: 20101111, end: 20101207
  5. ACYCLOVIR [Concomitant]
     Indication: INFECTION PROPHYLAXIS
     Dosage: 400 MG, UNK
     Dates: start: 20101112, end: 20101207

REACTIONS (4)
  - ASTHENIA [None]
  - BACTERAEMIA [None]
  - CONSTIPATION [None]
  - GENERAL PHYSICAL HEALTH DETERIORATION [None]
